FAERS Safety Report 20136010 (Version 1)
Quarter: 2021Q4

REPORT INFORMATION
  Report Type: Spontaneous
  Country: US (occurrence: None)
  Receive Date: 20211201
  Receipt Date: 20211201
  Transmission Date: 20220303
  Serious: Yes (Other)
  Sender: FDA-Public Use
  Company Number: 2021A825728

PATIENT
  Sex: Male
  Weight: 83.5 kg

DRUGS (3)
  1. LYNPARZA [Suspect]
     Active Substance: OLAPARIB
     Dosage: DOSE UNKNOWN
     Route: 048
  2. VUDALIMAB [Suspect]
     Active Substance: VUDALIMAB
     Dosage: UNKNOWN DOSE
     Route: 065
  3. CARBOPLATIN [Suspect]
     Active Substance: CARBOPLATIN
     Dosage: UNKNOWN DOSE
     Route: 065

REACTIONS (7)
  - Sepsis [Unknown]
  - Haematuria [Unknown]
  - Rash maculo-papular [Unknown]
  - Nausea [Unknown]
  - Fatigue [Unknown]
  - Pyrexia [Unknown]
  - Back pain [Unknown]
